FAERS Safety Report 12998398 (Version 1)
Quarter: 2016Q4

REPORT INFORMATION
  Report Type: Report from Study
  Country: US (occurrence: US)
  Receive Date: 20161205
  Receipt Date: 20161205
  Transmission Date: 20170207
  Serious: Yes (Other)
  Sender: FDA-Public Use
  Company Number: US-MALLINCKRODT-T201606198

PATIENT
  Age: 65 Year
  Sex: Female

DRUGS (2)
  1. REPOSITORY CORTICOTROPIN INJECTION [Suspect]
     Active Substance: CORTICOTROPIN
     Indication: PSORIATIC ARTHROPATHY
     Dosage: 80 UNITS / 1 ML 2 TIMES PER WEEK
     Route: 058
     Dates: start: 20161112
  2. REPOSITORY CORTICOTROPIN INJECTION [Suspect]
     Active Substance: CORTICOTROPIN
     Indication: RHEUMATOID ARTHRITIS
     Dosage: 80 UNITS / 1 ML 2 TIMES PER WEEK
     Route: 058
     Dates: start: 20160810, end: 201610

REACTIONS (1)
  - Bone formation decreased [Not Recovered/Not Resolved]

NARRATIVE: CASE EVENT DATE: 201611
